FAERS Safety Report 5064287-7 (Version None)
Quarter: 2006Q3

REPORT INFORMATION
  Report Type: 
  Country: None (occurrence: None)
  Receive Date: 20060728
  Receipt Date: 20060717
  Transmission Date: 20061208
  Serious: Yes (Hospitalization)
  Sender: FDA-Public Use
  Company Number: JP-KINGPHARMUSA00001-K200600931

PATIENT
  Age: 27 Year
  Sex: Male

DRUGS (7)
  1. SEPTRA [Suspect]
     Indication: PROPHYLAXIS
     Dosage: 400/80 MG, QD
     Route: 048
     Dates: start: 20040316, end: 20040505
  2. PREDNISOLONE [Concomitant]
     Indication: EOSINOPHILIC PNEUMONIA
     Dosage: 30 MG, QD
  3. PREDNISOLONE [Concomitant]
     Dosage: 40 MG, QD
  4. PREDNISOLONE [Concomitant]
     Dosage: 60 MG, QD
  5. PREDNISOLONE [Concomitant]
     Dosage: 30 MG, QD
  6. PREDNISOLONE [Concomitant]
     Dosage: 40 MG, QD
  7. PREDNISOLONE [Concomitant]
     Dosage: 35 MG, QD

REACTIONS (16)
  - BLOOD LACTATE DEHYDROGENASE INCREASED [None]
  - C-REACTIVE PROTEIN INCREASED [None]
  - CYTOMEGALOVIRUS ANTIGEN POSITIVE [None]
  - DERMATITIS EXFOLIATIVE [None]
  - DRUG HYPERSENSITIVITY [None]
  - EOSINOPHILIA [None]
  - HEPATOSPLENOMEGALY [None]
  - HUMAN HERPESVIRUS 6 INFECTION [None]
  - HYPERKERATOSIS [None]
  - IMMUNOGLOBULINS INCREASED [None]
  - LYMPHADENOPATHY [None]
  - LYMPHOCYTOSIS [None]
  - MUCOSAL INFLAMMATION [None]
  - PYREXIA [None]
  - RASH [None]
  - SKIN EXFOLIATION [None]
